FAERS Safety Report 22244995 (Version 6)
Quarter: 2025Q3

REPORT INFORMATION
  Report Type: Spontaneous
  Country: NZ (occurrence: NZ)
  Receive Date: 20230424
  Receipt Date: 20250702
  Transmission Date: 20251020
  Serious: Yes (Other)
  Sender: AMGEN
  Company Number: NZ-PFIZER INC-202300143623

PATIENT
  Age: 39 Year
  Sex: Female

DRUGS (2)
  1. ENBREL [Suspect]
     Active Substance: ETANERCEPT
     Indication: Rheumatoid arthritis
     Route: 065
     Dates: start: 2015, end: 2021
  2. HYDROXYCHLOROQUINE [Concomitant]
     Active Substance: HYDROXYCHLOROQUINE
     Dates: start: 2020

REACTIONS (14)
  - Drug dependence [Unknown]
  - Fibromyalgia [Unknown]
  - Rash pruritic [Not Recovered/Not Resolved]
  - Scar [Not Recovered/Not Resolved]
  - Infection [Unknown]
  - Oropharyngeal pain [Unknown]
  - Lymph node pain [Unknown]
  - Impetigo [Unknown]
  - Varicella [Unknown]
  - Tinea infection [Unknown]
  - Fungal infection [Unknown]
  - Skin infection [Unknown]
  - Bacterial infection [Unknown]
  - Lymphatic disorder [Unknown]

NARRATIVE: CASE EVENT DATE: 20150101
